FAERS Safety Report 6117639-8 (Version None)
Quarter: 2009Q1

REPORT INFORMATION
  Report Type: 
  Country: None (occurrence: None)
  Receive Date: 20090314
  Receipt Date: 20090209
  Transmission Date: 20090719
  Serious: No
  Sender: FDA-Public Use
  Company Number: US-ABBOTT-09P-163-0499982-00

PATIENT
  Sex: Female
  Weight: 93.07 kg

DRUGS (2)
  1. HUMIRA [Suspect]
     Indication: PSORIASIS
     Route: 058
     Dates: start: 20070901
  2. JANUVIA [Suspect]
     Indication: DIABETES MELLITUS
     Route: 048
     Dates: start: 20081101

REACTIONS (10)
  - ERYTHEMA [None]
  - FATIGUE [None]
  - INCORRECT DOSE ADMINISTERED [None]
  - MOTOR DYSFUNCTION [None]
  - PAIN IN EXTREMITY [None]
  - PRURITUS [None]
  - PSORIASIS [None]
  - RASH [None]
  - SKIN EXFOLIATION [None]
  - SKIN FISSURES [None]
